FAERS Safety Report 20238201 (Version 1)
Quarter: 2021Q4

REPORT INFORMATION
  Report Type: Spontaneous
  Country: DE (occurrence: DE)
  Receive Date: 20211228
  Receipt Date: 20211228
  Transmission Date: 20220303
  Serious: Yes (Hospitalization, Other)
  Sender: FDA-Public Use
  Company Number: None

PATIENT
  Age: 21 Year
  Sex: Male

DRUGS (9)
  1. PACLITAXEL [Suspect]
     Active Substance: PACLITAXEL
     Indication: Testicular cancer metastatic
     Dosage: 250 MILLIGRAM/SQ. METER, CYCLE, 250 MG/M2 2 CYCLICAL
     Route: 042
  2. IFOSFAMIDE [Suspect]
     Active Substance: IFOSFAMIDE
     Indication: Testicular cancer metastatic
     Dosage: 2000 MILLIGRAM/SQ. METER, CYCLE, 2000 MG/M2 2 CYCLICAL
     Route: 042
  3. ETOPOSIDE [Suspect]
     Active Substance: ETOPOSIDE
     Indication: Testicular cancer metastatic
     Dosage: 400 MILLIGRAM/SQ. METER, CYCLE, 400 MG/M2 3 CYCLICAL  (THERAPY DURATION: 3 DAYS?
     Route: 042
  4. CARBOPLATIN [Suspect]
     Active Substance: CARBOPLATIN
     Indication: Testicular cancer metastatic
     Dosage: UNK, UNKNOWN DOSAGE (THERAPY DURATION: 3 DAYS)
     Route: 042
  5. FILGRASTIM [Concomitant]
     Active Substance: FILGRASTIM
     Dosage: 10 MICROGRAM/KILOGRAM, CYCLE, 10 MICROGRAMM/KG 3 CYCLICAL
  6. ACYCLOVIR [Concomitant]
     Active Substance: ACYCLOVIR
     Indication: Prophylaxis
     Dosage: 1600 MILLIGRAM, QD, DAILY DOSE: 1600 MG MILLIGRAM(S) EVERY DAY
     Route: 048
  7. CIPROFLOXACIN [Concomitant]
     Active Substance: CIPROFLOXACIN
     Indication: Prophylaxis
     Dosage: 1000 MILLIGRAM, QD, DAILY DOSE: 1000 MG MILLIGRAM(S) EVERY DAY
     Route: 048
  8. FLUCONAZOLE [Concomitant]
     Active Substance: FLUCONAZOLE
     Indication: Prophylaxis
     Dosage: 200 MILLIGRAM, QD, 200 MG 1 DAYS
     Route: 048
  9. LENOGRASTIM [Concomitant]
     Active Substance: LENOGRASTIM
     Dosage: UNK

REACTIONS (5)
  - Clostridium difficile colitis [Recovered/Resolved]
  - Rhabdomyolysis [Unknown]
  - Streptococcal bacteraemia [Recovered/Resolved]
  - Sepsis [Recovered/Resolved]
  - Febrile neutropenia [Recovered/Resolved]
